FAERS Safety Report 7017695-9 (Version None)
Quarter: 2010Q3

REPORT INFORMATION
  Report Type: 
  Country: None (occurrence: None)
  Receive Date: 20100928
  Receipt Date: 20100914
  Transmission Date: 20110219
  Serious: Yes (Hospitalization)
  Sender: FDA-Public Use
  Company Number: DE-RANBAXY-2010RR-38308

PATIENT
  Age: 71 Year
  Sex: Male
  Weight: 85 kg

DRUGS (10)
  1. LERCANIDIPINE [Suspect]
     Indication: HYPERTENSION
     Dosage: 10 MG, UNK
     Route: 048
     Dates: start: 20060101
  2. ENALAPRIL MALEATE [Suspect]
     Indication: HYPERTENSION
     Dosage: 20 MG, UNK
     Route: 048
     Dates: start: 20060101
  3. NOVORAPID [Suspect]
     Indication: DIABETES MELLITUS
     Dosage: UNK
     Route: 058
     Dates: start: 20080101, end: 20080908
  4. LEVEMIR [Suspect]
     Indication: DIABETES MELLITUS
     Dosage: 14 IU, UNK
     Route: 058
     Dates: start: 20080101
  5. OPIPRAMOL [Suspect]
     Indication: RESTLESSNESS
     Dosage: 50 MG, UNK
     Route: 048
     Dates: start: 20070101, end: 20080906
  6. TARGIN [Suspect]
     Indication: BACK PAIN
     Dosage: 1 DF, UNK
     Route: 048
     Dates: start: 20070101
  7. CLOPIDOGREL [Concomitant]
     Indication: ISCHAEMIC HEART DISEASE PROPHYLAXIS
     Dosage: 75 MG, UNK
     Route: 048
     Dates: start: 20050801
  8. MELPERONE [Concomitant]
     Indication: RESTLESSNESS
     Dosage: UNK
     Route: 048
     Dates: start: 20080401, end: 20080909
  9. PLETAL [Concomitant]
     Indication: PERIPHERAL ARTERIAL OCCLUSIVE DISEASE
     Dosage: 50 MG, UNK
     Route: 048
  10. PENTOXIFYLLIN AL [Concomitant]
     Indication: PERIPHERAL ARTERIAL OCCLUSIVE DISEASE
     Dosage: 600 MG, UNK
     Route: 048
     Dates: start: 20050101

REACTIONS (3)
  - DIZZINESS [None]
  - DRUG INTERACTION [None]
  - HYPOGLYCAEMIA [None]
